FAERS Safety Report 17074615 (Version 1)
Quarter: 2019Q4

REPORT INFORMATION
  Report Type: Spontaneous
  Country: US (occurrence: US)
  Receive Date: 20191126
  Receipt Date: 20191126
  Transmission Date: 20200122
  Serious: Yes (Hospitalization, Other)
  Sender: FDA-Public Use
  Company Number: US-ROCHE-2477406

PATIENT
  Age: 73 Year
  Sex: Male

DRUGS (1)
  1. OCREVUS [Suspect]
     Active Substance: OCRELIZUMAB
     Indication: PRIMARY PROGRESSIVE MULTIPLE SCLEROSIS
     Dosage: ONGOING NO
     Route: 042
     Dates: start: 2017

REACTIONS (5)
  - Drug ineffective [Unknown]
  - Leukocytosis [Unknown]
  - Oesophageal candidiasis [Unknown]
  - Lymphocyte count decreased [Unknown]
  - Syncope [Unknown]

NARRATIVE: CASE EVENT DATE: 2019
